FAERS Safety Report 4398945-4 (Version None)
Quarter: 2004Q3

REPORT INFORMATION
  Report Type: 
  Country: None (occurrence: None)
  Receive Date: 20040712
  Receipt Date: 20040628
  Transmission Date: 20050211
  Serious: Yes (Disabling, Other)
  Sender: FDA-Public Use
  Company Number: US-JNJFOC-20030703580

PATIENT
  Age: 56 Year
  Sex: Male

DRUGS (7)
  1. REMICADE [Suspect]
     Indication: CROHN'S DISEASE
     Dosage: INTRAVENOUS : 5 MG/MG , INTRAVENOUS : 5 MG/KG , INTRAVENOUS
     Route: 042
     Dates: start: 20020101
  2. REMICADE [Suspect]
     Indication: CROHN'S DISEASE
     Dosage: INTRAVENOUS : 5 MG/MG , INTRAVENOUS : 5 MG/KG , INTRAVENOUS
     Route: 042
     Dates: start: 20030110
  3. REMICADE [Suspect]
     Indication: CROHN'S DISEASE
     Dosage: INTRAVENOUS : 5 MG/MG , INTRAVENOUS : 5 MG/KG , INTRAVENOUS
     Route: 042
     Dates: start: 20030221
  4. PENTASA [Concomitant]
  5. QUESTRAN [Concomitant]
  6. B12 (CYANOCOBALAMIN) [Concomitant]
  7. ENALAPRIL MALEATE [Concomitant]

REACTIONS (5)
  - HYPOAESTHESIA [None]
  - MICROANGIOPATHY [None]
  - MYELITIS TRANSVERSE [None]
  - NEUROPATHY PERIPHERAL [None]
  - PARAESTHESIA [None]
